FAERS Safety Report 6141418-9 (Version None)
Quarter: 2009Q1

REPORT INFORMATION
  Report Type: 
  Country: None (occurrence: None)
  Receive Date: 20090331
  Receipt Date: 20090317
  Transmission Date: 20090719
  Serious: Yes (Other)
  Sender: FDA-Public Use
  Company Number: 2009S1004757

PATIENT
  Age: 16 Year
  Sex: Male

DRUGS (2)
  1. OMEPRAZOLE [Suspect]
     Indication: DRUG USE FOR UNKNOWN INDICATION
     Dosage: 10 MG;TWICE A DAY;ORAL
     Route: 048
     Dates: start: 20090109, end: 20090113
  2. LYMECYCLINE [Concomitant]

REACTIONS (1)
  - NEPHROTIC SYNDROME [None]
